FAERS Safety Report 21825459 (Version 1)
Quarter: 2023Q1

REPORT INFORMATION
  Report Type: Spontaneous
  Country: US (occurrence: None)
  Receive Date: 20230105
  Receipt Date: 20230105
  Transmission Date: 20230418
  Serious: Yes (Disabling)
  Sender: FDA-Public Use
  Company Number: None

PATIENT
  Age: 27 Year
  Sex: Male
  Weight: 63.45 kg

DRUGS (2)
  1. AMPHETAMINE ADIPATE\DEXTROAMPHETAMINE [Suspect]
     Active Substance: AMPHETAMINE ADIPATE\DEXTROAMPHETAMINE
     Indication: Attention deficit hyperactivity disorder
     Dosage: OTHER QUANTITY : 60 TABLET(S);?FREQUENCY : TWICE A DAY;?
     Route: 048
     Dates: start: 20230103, end: 20230105
  2. Adderall generic 20mg [Concomitant]

REACTIONS (15)
  - Therapy non-responder [None]
  - Condition aggravated [None]
  - Disturbance in attention [None]
  - Headache [None]
  - Dizziness [None]
  - Abdominal discomfort [None]
  - Abdominal pain upper [None]
  - Confusional state [None]
  - Speech disorder [None]
  - Anxiety [None]
  - Depression [None]
  - Impaired driving ability [None]
  - Product substitution issue [None]
  - Therapeutic response decreased [None]
  - Suspected product quality issue [None]

NARRATIVE: CASE EVENT DATE: 20230105
